FAERS Safety Report 8544305-1 (Version None)
Quarter: 2012Q3

REPORT INFORMATION
  Report Type: 
  Country: None (occurrence: None)
  Receive Date: 20120727
  Receipt Date: 20120529
  Transmission Date: 20120928
  Serious: No
  Sender: FDA-Public Use
  Company Number: US-MUTUAL PHARMACEUTICAL COMPANY, INC.-CLCY20120091

PATIENT
  Sex: Male
  Weight: 78.088 kg

DRUGS (9)
  1. COLCRYS [Suspect]
     Indication: GOUT
     Route: 048
     Dates: start: 20120501
  2. COLCHICINE [Suspect]
     Indication: GOUT
     Route: 048
     Dates: start: 19720101, end: 20120401
  3. COLCHICINE [Suspect]
     Indication: FAMILIAL MEDITERRANEAN FEVER
  4. POTASSIUM CHLORIDE [Concomitant]
     Indication: MEDICAL DIET
     Route: 048
  5. FUROSEMIDE [Concomitant]
     Indication: FLUID RETENTION
     Route: 048
  6. ASPIRIN [Concomitant]
     Indication: PROPHYLAXIS
     Route: 048
  7. PLAVIX [Concomitant]
     Indication: PROPHYLAXIS
     Route: 048
  8. COREG [Concomitant]
     Indication: MYOCARDIAL INFARCTION
     Route: 048
  9. COLCRYS [Suspect]
     Indication: FAMILIAL MEDITERRANEAN FEVER
     Route: 048
     Dates: start: 20120401, end: 20120501

REACTIONS (2)
  - COUGH [None]
  - DIARRHOEA [None]
